FAERS Safety Report 21667996 (Version 1)
Quarter: 2022Q4

REPORT INFORMATION
  Report Type: Spontaneous
  Country: NO (occurrence: NO)
  Receive Date: 20221201
  Receipt Date: 20221201
  Transmission Date: 20230113
  Serious: Yes (Hospitalization)
  Sender: FDA-Public Use
  Company Number: None

PATIENT
  Age: 55 Year
  Sex: Male
  Weight: 97 kg

DRUGS (1)
  1. OZEMPIC [Suspect]
     Active Substance: SEMAGLUTIDE
     Indication: Type 2 diabetes mellitus
     Dosage: 0.5 MG, QW
     Dates: start: 202202, end: 202210

REACTIONS (6)
  - Pityriasis rubra pilaris [Recovering/Resolving]
  - Skin hypertrophy [Unknown]
  - Erythema [Unknown]
  - Erythema [Unknown]
  - Erythema [Unknown]
  - Erythema [Unknown]

NARRATIVE: CASE EVENT DATE: 20220701
